FAERS Safety Report 9587798 (Version 1)
Quarter: 2013Q4

REPORT INFORMATION
  Report Type: Spontaneous
  Country: CA (occurrence: CA)
  Receive Date: 20131003
  Receipt Date: 20131003
  Transmission Date: 20140711
  Serious: Yes (Other)
  Sender: FDA-Public Use
  Company Number: CA-PFIZER INC-2013278595

PATIENT
  Age: 76 Year
  Sex: Female

DRUGS (4)
  1. EPIRUBICIN HCL [Suspect]
     Indication: BREAST CANCER
     Dosage: UNK
  2. FLUOROURACIL [Suspect]
     Indication: BREAST CANCER
     Dosage: UNK
  3. CYCLOPHOSPHAMIDE [Suspect]
     Indication: BREAST CANCER
     Dosage: UNK
  4. TAXOTERE [Suspect]
     Indication: BREAST CANCER
     Dosage: UNK

REACTIONS (1)
  - Mucosal inflammation [Recovered/Resolved]
